FAERS Safety Report 5289699-8 (Version None)
Quarter: 2007Q2

REPORT INFORMATION
  Report Type: 
  Country: None (occurrence: None)
  Receive Date: 20070406
  Receipt Date: 20070402
  Transmission Date: 20071010
  Serious: Yes (Other)
  Sender: FDA-Public Use
  Company Number: US-JNJFOC-20070400818

PATIENT
  Age: 55 Year
  Sex: Female
  Weight: 58.97 kg

DRUGS (2)
  1. RISPERDAL [Suspect]
     Indication: SCHIZOAFFECTIVE DISORDER
     Route: 048
  2. ATIVAN [Concomitant]
     Indication: ANXIETY
     Route: 048

REACTIONS (5)
  - BLOOD SODIUM DECREASED [None]
  - CEREBRAL ATROPHY [None]
  - CONVULSION [None]
  - MANIA [None]
  - WEIGHT INCREASED [None]
